FAERS Safety Report 25411683 (Version 4)
Quarter: 2025Q2

REPORT INFORMATION
  Report Type: Report from Study
  Country: US (occurrence: US)
  Receive Date: 20250609
  Receipt Date: 20250625
  Transmission Date: 20250716
  Serious: Yes (Death, Hospitalization, Other)
  Sender: DR REDDYS
  Company Number: US-DRL-USA-USA/2025/06/008250

PATIENT
  Sex: Male

DRUGS (2)
  1. JAVYGTOR [Suspect]
     Active Substance: SAPROPTERIN DIHYDROCHLORIDE
     Indication: Phenylketonuria
     Dosage: DISSOLVE TWO POWDER PACKETS IN 4 TO 8 OUNCES OF WATER OR APPLE JUICE AND TAKE ONCE DAILY WITH MEAL A
     Route: 064
  2. JAVYGTOR [Suspect]
     Active Substance: SAPROPTERIN DIHYDROCHLORIDE
     Indication: Hyperphenylalaninaemia
     Route: 064

REACTIONS (2)
  - Death [Fatal]
  - Foetal exposure during pregnancy [Unknown]
